FAERS Safety Report 7586632-0 (Version None)
Quarter: 2011Q3

REPORT INFORMATION
  Report Type: 
  Country: None (occurrence: None)
  Receive Date: 20110701
  Receipt Date: 20110630
  Transmission Date: 20111222
  Serious: Yes (Death, Other)
  Sender: FDA-Public Use
  Company Number: US-ROXANE LABORATORIES, INC.-2011-RO-00916RO

PATIENT
  Age: 33 Year
  Sex: Female

DRUGS (2)
  1. CYCLOPHOSPHAMIDE [Suspect]
     Indication: METASTATIC RENAL CELL CARCINOMA
  2. FLUDARABINE PHOSPHATE [Suspect]
     Indication: METASTATIC RENAL CELL CARCINOMA

REACTIONS (2)
  - METASTATIC RENAL CELL CARCINOMA [None]
  - PREMATURE MENOPAUSE [None]
